FAERS Safety Report 22109910 (Version 10)
Quarter: 2024Q3

REPORT INFORMATION
  Report Type: Spontaneous
  Country: IN (occurrence: IN)
  Receive Date: 20230317
  Receipt Date: 20240716
  Transmission Date: 20241017
  Serious: Yes (Other)
  Sender: PFIZER
  Company Number: IN-PFIZER INC-PV202200018099

PATIENT
  Age: 45 Year
  Sex: Male

DRUGS (3)
  1. LORLATINIB [Suspect]
     Active Substance: LORLATINIB
     Indication: Lung cancer metastatic
     Dosage: 100 MG, 1X/DAY (1 HOUR BEFORE/ 2 HOURS AFTER A MEAL, NOT TO TAKE PAN/ANTACIDS)
     Route: 048
     Dates: start: 202011
  2. LEVETIRACETAM [Concomitant]
     Active Substance: LEVETIRACETAM
     Dosage: UNK
  3. ROSUVASTATIN [Concomitant]
     Active Substance: ROSUVASTATIN
     Dosage: 20 MG, 1X/DAY AT BEDTIME

REACTIONS (22)
  - Hypertriglyceridaemia [Recovering/Resolving]
  - Blood glucose increased [Unknown]
  - Dyslipidaemia [Unknown]
  - Neoplasm progression [Unknown]
  - Oedema peripheral [Unknown]
  - Arthralgia [Unknown]
  - Hepatic steatosis [Unknown]
  - Hypertension [Recovering/Resolving]
  - Platelet count decreased [Recovering/Resolving]
  - Gamma-glutamyltransferase increased [Not Recovered/Not Resolved]
  - Mean platelet volume increased [Recovering/Resolving]
  - Blood urea increased [Recovering/Resolving]
  - Body temperature decreased [Unknown]
  - Hypercholesterolaemia [Recovering/Resolving]
  - Blood cholesterol increased [Recovering/Resolving]
  - Low density lipoprotein increased [Recovering/Resolving]
  - Dyspepsia [Unknown]
  - Chest pain [Unknown]
  - Blood triglycerides increased [Unknown]
  - Neutrophil percentage increased [Unknown]
  - Blood creatinine decreased [Unknown]
  - Product dose omission in error [Unknown]

NARRATIVE: CASE EVENT DATE: 20201218
